FAERS Safety Report 4952119-4 (Version None)
Quarter: 2006Q1

REPORT INFORMATION
  Report Type: 
  Country: None (occurrence: None)
  Receive Date: 20060320
  Receipt Date: 20060302
  Transmission Date: 20060701
  Serious: Yes (Hospitalization)
  Sender: FDA-Public Use
  Company Number: DSA_26445_2005

PATIENT
  Age: 87 Year
  Sex: Female

DRUGS (8)
  1. CARDIZEM CD [Suspect]
     Indication: MYOCARDIAL ISCHAEMIA
     Dosage: 180 MG Q DAY PO
     Route: 048
     Dates: end: 20040512
  2. ASANTIN [Concomitant]
  3. COVERSYL [Concomitant]
  4. DITROPAN [Concomitant]
  5. FRUSEMIDE [Concomitant]
  6. SINEMET [Concomitant]
  7. PRAVACHOL [Concomitant]
  8. GLYCERYL TRINITRATE [Concomitant]

REACTIONS (3)
  - ATRIOVENTRICULAR BLOCK FIRST DEGREE [None]
  - HYPOTENSION [None]
  - SYNCOPE VASOVAGAL [None]
